FAERS Safety Report 5726197-9 (Version None)
Quarter: 2008Q2

REPORT INFORMATION
  Report Type: 
  Country: None (occurrence: None)
  Receive Date: 20080502
  Receipt Date: 20080320
  Transmission Date: 20081010
  Serious: No
  Sender: FDA-Public Use
  Company Number: US-BAYER-200819719NA

PATIENT

DRUGS (1)
  1. AVELOX [Suspect]
     Indication: RESPIRATORY TRACT INFECTION
     Route: 048

REACTIONS (4)
  - FORMICATION [None]
  - INSOMNIA [None]
  - PALPITATIONS [None]
  - TENSION [None]
